FAERS Safety Report 23592786 (Version 1)
Quarter: 2024Q1

REPORT INFORMATION
  Report Type: Spontaneous
  Country: US (occurrence: US)
  Receive Date: 20240304
  Receipt Date: 20240304
  Transmission Date: 20240410
  Serious: No
  Sender: FDA-Public Use
  Company Number: US-BRISTOL-MYERS SQUIBB COMPANY-2023-167492

PATIENT
  Age: 68 Year
  Sex: Male
  Weight: 65.77 kg

DRUGS (2)
  1. LENALIDOMIDE [Suspect]
     Active Substance: LENALIDOMIDE
     Indication: Plasma cell myeloma
     Dosage: D1-21 Q28 DAY
     Route: 048
     Dates: start: 20230707
  2. LENALIDOMIDE [Suspect]
     Active Substance: LENALIDOMIDE
     Dosage: FREQUENCY-EVERY OTHER WEEK FOR 28 DAYS
     Route: 048
     Dates: start: 20230707

REACTIONS (1)
  - Off label use [Unknown]
